FAERS Safety Report 17398660 (Version 1)
Quarter: 2020Q1

REPORT INFORMATION
  Report Type: Spontaneous
  Country: US (occurrence: US)
  Receive Date: 20200210
  Receipt Date: 20200210
  Transmission Date: 20200409
  Serious: No
  Sender: FDA-Public Use
  Company Number: US-VAYAPHARMA-2018-US-014835

PATIENT
  Age: 9 Year
  Sex: Male
  Weight: 38.56 kg

DRUGS (1)
  1. VAYARIN PLUS [Suspect]
     Active Substance: DOCONEXENT\ICOSAPENT\PHOSPHATIDYL SERINE
     Indication: ATTENTION DEFICIT/HYPERACTIVITY DISORDER
     Dosage: ONE CAPSULE PER DAY
     Route: 048
     Dates: start: 20180730, end: 20180828

REACTIONS (4)
  - Pruritus [Unknown]
  - Rash [Unknown]
  - Erythema [Unknown]
  - Urticaria [Unknown]

NARRATIVE: CASE EVENT DATE: 20180730
